FAERS Safety Report 4468264-6 (Version None)
Quarter: 2004Q4

REPORT INFORMATION
  Report Type: 
  Country: None (occurrence: None)
  Receive Date: 20041004
  Receipt Date: 20040922
  Transmission Date: 20050328
  Serious: Yes (Hospitalization)
  Sender: FDA-Public Use
  Company Number: 2004235143DE

PATIENT
  Age: 62 Year
  Sex: Female

DRUGS (1)
  1. BEXTRA [Suspect]
     Indication: SPINAL DISORDER
     Dosage: 20 MG, QD, ORAL
     Route: 048
     Dates: start: 20040902, end: 20040908

REACTIONS (1)
  - RASH GENERALISED [None]
